FAERS Safety Report 12773787 (Version 1)
Quarter: 2016Q3

REPORT INFORMATION
  Report Type: Spontaneous
  Country: US (occurrence: US)
  Receive Date: 20160923
  Receipt Date: 20160923
  Transmission Date: 20161109
  Serious: Yes (Hospitalization, Other)
  Sender: FDA-Public Use
  Company Number: US-ACADIA PHARMACEUTICALS INC.-ACA-2016-000699

PATIENT
  Sex: Male

DRUGS (2)
  1. RISPERIDONE. [Concomitant]
     Active Substance: RISPERIDONE
     Indication: PRODUCT USED FOR UNKNOWN INDICATION
     Dosage: LOW DOSE
  2. NUPLAZID [Suspect]
     Active Substance: PIMAVANSERIN TARTRATE
     Indication: PARKINSON^S DISEASE PSYCHOSIS
     Dosage: 34 MG, QD
     Route: 048
     Dates: start: 2016

REACTIONS (11)
  - Traumatic liver injury [Recovering/Resolving]
  - Delusion [Unknown]
  - Fall [Recovering/Resolving]
  - Traumatic haemothorax [Recovering/Resolving]
  - Aspiration [Recovering/Resolving]
  - Traumatic renal injury [Recovering/Resolving]
  - Rib fracture [Recovering/Resolving]
  - Pneumonia bacterial [Recovering/Resolving]
  - Aortic dissection [Recovered/Resolved]
  - Pyrexia [Recovering/Resolving]
  - Subdural haematoma [Recovering/Resolving]

NARRATIVE: CASE EVENT DATE: 2016
